FAERS Safety Report 6000200-3 (Version None)
Quarter: 2008Q4

REPORT INFORMATION
  Report Type: 
  Country: None (occurrence: None)
  Receive Date: 20081215
  Receipt Date: 20081210
  Transmission Date: 20090506
  Serious: Yes (Hospitalization)
  Sender: FDA-Public Use
  Company Number: US-PFIZER INC-2006035330

PATIENT
  Sex: Male
  Weight: 101 kg

DRUGS (6)
  1. INHALED HUMAN INSULIN [Suspect]
     Indication: TYPE 2 DIABETES MELLITUS
     Dosage: 9 IU, 3X/DAY
     Route: 055
     Dates: start: 20021125
  2. ISOPHANE INSULIN [Suspect]
     Indication: TYPE 2 DIABETES MELLITUS
     Dosage: 5 IU, 2X/DAY
     Route: 058
     Dates: start: 20041122
  3. FELODIPINE [Concomitant]
     Route: 048
     Dates: start: 20010101
  4. METOPROLOL [Concomitant]
     Route: 048
     Dates: start: 20010101
  5. TERAZOSIN HCL [Concomitant]
     Route: 048
     Dates: start: 20000101
  6. SIMVASTATIN [Concomitant]
     Route: 048
     Dates: start: 20010101

REACTIONS (2)
  - PROSTATOMEGALY [None]
  - URINARY TRACT INFECTION [None]
